FAERS Safety Report 4808543-3 (Version None)
Quarter: 2005Q4

REPORT INFORMATION
  Report Type: 
  Country: None (occurrence: None)
  Receive Date: 20051021
  Receipt Date: 20040608
  Transmission Date: 20060501
  Serious: Yes (Hospitalization)
  Sender: FDA-Public Use
  Company Number: FR_040403862

PATIENT
  Age: 49 Year
  Sex: Male

DRUGS (6)
  1. ZYPREXA [Suspect]
     Indication: AGITATION
     Dosage: 10 MG/1 DAY
     Dates: start: 20040401, end: 20040401
  2. TRANXENE (CLORAZEPATE DIPOTASIUM) [Concomitant]
  3. DOGMATIL (SULPIRIDE) [Concomitant]
  4. OXAZEPAM [Concomitant]
  5. FORADIL [Concomitant]
  6. PULMICORT [Concomitant]

REACTIONS (9)
  - BLOOD CREATINE PHOSPHOKINASE INCREASED [None]
  - CYANOSIS [None]
  - DYSPNOEA [None]
  - GRAND MAL CONVULSION [None]
  - INSOMNIA [None]
  - LEUKOCYTOSIS [None]
  - MEAN CELL VOLUME INCREASED [None]
  - PLATELET COUNT DECREASED [None]
  - TACHYCARDIA [None]
